FAERS Safety Report 26186447 (Version 1)
Quarter: 2025Q4

REPORT INFORMATION
  Report Type: Spontaneous
  Country: US (occurrence: None)
  Receive Date: 20251219
  Receipt Date: 20251219
  Transmission Date: 20260117
  Serious: Yes (Hospitalization)
  Sender: FDA-CTU
  Company Number: None

PATIENT
  Age: 79 Year
  Sex: Male
  Weight: 130 kg

DRUGS (1)
  1. WEGOVY [Suspect]
     Active Substance: SEMAGLUTIDE
     Indication: Weight decreased
     Dosage: 1.7 MG QWEEK SQ
     Route: 058
     Dates: start: 20250425, end: 20250627

REACTIONS (5)
  - Acute kidney injury [None]
  - Dehydration [None]
  - Malaise [None]
  - Therapy cessation [None]
  - Cholecystitis acute [None]

NARRATIVE: CASE EVENT DATE: 20250810
